FAERS Safety Report 6701211-2 (Version None)
Quarter: 2010Q2

REPORT INFORMATION
  Report Type: 
  Country: None (occurrence: None)
  Receive Date: 20100427
  Receipt Date: 20100413
  Transmission Date: 20101027
  Serious: Yes (Other)
  Sender: FDA-Public Use
  Company Number: CL-112-2010

PATIENT
  Sex: Female

DRUGS (2)
  1. METRONIDAZOLE                                          SANDOZ [Suspect]
     Indication: PELVIC ABSCESS
     Dosage: ORAL
     Route: 048
     Dates: start: 20091109, end: 20091110
  2. DOXYCYCLINE [Concomitant]

REACTIONS (2)
  - BRONCHOSPASM [None]
  - HYPERSENSITIVITY [None]
